FAERS Safety Report 5670573-X (Version None)
Quarter: 2008Q1

REPORT INFORMATION
  Report Type: 
  Country: None (occurrence: None)
  Receive Date: 20080318
  Receipt Date: 20080312
  Transmission Date: 20080703
  Serious: Yes (Hospitalization, Other)
  Sender: FDA-Public Use
  Company Number: FR-WYE-G01018308

PATIENT
  Sex: Female
  Weight: 59 kg

DRUGS (7)
  1. RAPAMUNE [Suspect]
     Indication: PROPHYLAXIS AGAINST TRANSPLANT REJECTION
     Route: 048
     Dates: start: 20031003, end: 20080207
  2. CORTANCYL [Concomitant]
     Route: 048
     Dates: start: 20030701
  3. OMEPRAZOLE [Concomitant]
     Route: 048
     Dates: start: 20050706
  4. EUPRESSYL [Concomitant]
     Dosage: UNKNOWN
     Dates: start: 20030101, end: 20080201
  5. LASILIX [Concomitant]
     Dosage: 80 MG TOTAL DAILY
     Route: 048
     Dates: start: 20030101
  6. MYFORTIC [Concomitant]
     Indication: PROPHYLAXIS AGAINST TRANSPLANT REJECTION
     Dosage: 540 MG TOTAL DAILY
     Route: 048
     Dates: start: 20070406
  7. ISOPTIN [Concomitant]
     Dosage: 480 MG TOTAL DAILY
     Route: 048
     Dates: start: 20030701

REACTIONS (8)
  - ABDOMINAL PAIN UPPER [None]
  - BLOOD LACTATE DEHYDROGENASE INCREASED [None]
  - C-REACTIVE PROTEIN INCREASED [None]
  - GENERAL PHYSICAL HEALTH DETERIORATION [None]
  - INTERSTITIAL LUNG DISEASE [None]
  - KIDNEY TRANSPLANT REJECTION [None]
  - NAUSEA [None]
  - PYREXIA [None]
